FAERS Safety Report 7361428-3 (Version None)
Quarter: 2011Q1

REPORT INFORMATION
  Report Type: 
  Country: None (occurrence: None)
  Receive Date: 20110310
  Receipt Date: 20110225
  Transmission Date: 20110831
  Serious: Yes (Hospitalization)
  Sender: FDA-Public Use
  Company Number: 004713

PATIENT
  Sex: Female
  Weight: 60 kg

DRUGS (27)
  1. CALCIUM CARBONATE W/VITAMIN D /00944201/ [Concomitant]
  2. IZOFRAN /00955301/ [Concomitant]
  3. AMITRIPTYLINE [Concomitant]
  4. LORTAB [Concomitant]
  5. MECLIZINE /00072801/ [Concomitant]
  6. NEXIUM [Concomitant]
  7. ASPIRIN [Concomitant]
  8. FENTANYL [Concomitant]
  9. MACROBID [Concomitant]
  10. FOLIC ACID [Concomitant]
  11. DEXAMETHASONE [Concomitant]
  12. PREDNISONE [Concomitant]
  13. METOPROLOL TARTRATE [Concomitant]
  14. NORCO [Concomitant]
  15. ROCEPHIN [Concomitant]
  16. VERSED [Concomitant]
  17. PEPCID [Concomitant]
  18. BUSPIRONE HCL [Concomitant]
  19. ZOLOFT [Concomitant]
  20. LEXAPRO [Concomitant]
  21. CERTOLIZUMAB PEGOL [Suspect]
     Indication: RHEUMATOID ARTHRITIS
     Dosage: (200 MG 1X/2 WEEKS SUBCUTANEOUS)
     Route: 058
     Dates: start: 20091207, end: 20100304
  22. PHENERGAN HCL [Concomitant]
  23. TORADOL [Concomitant]
  24. ALBUTEROL [Concomitant]
  25. MUCINEX [Concomitant]
  26. LEVAQUIN [Concomitant]
  27. CARDIZEM [Concomitant]

REACTIONS (24)
  - HYPERSENSITIVITY [None]
  - ELECTROCARDIOGRAM REPOLARISATION ABNORMALITY [None]
  - PNEUMONIA [None]
  - COLITIS [None]
  - IMPAIRED GASTRIC EMPTYING [None]
  - BLOOD ALBUMIN DECREASED [None]
  - VULVOVAGINAL CANDIDIASIS [None]
  - SYNCOPE [None]
  - HAEMOGLOBIN DECREASED [None]
  - ORGANISING PNEUMONIA [None]
  - CLOSTRIDIUM TEST POSITIVE [None]
  - DIZZINESS [None]
  - PALPITATIONS [None]
  - PLATELET COUNT INCREASED [None]
  - VENTRICULAR HYPERTROPHY [None]
  - GASTRITIS [None]
  - SUPRAVENTRICULAR TACHYCARDIA [None]
  - BRONCHIOLITIS [None]
  - ASPIRATION [None]
  - RASH [None]
  - LEUKOCYTOSIS [None]
  - BLOOD PRESSURE DECREASED [None]
  - VENTRICULAR EXTRASYSTOLES [None]
  - HAEMATOCRIT DECREASED [None]
